FAERS Safety Report 17247056 (Version 1)
Quarter: 2019Q4

REPORT INFORMATION
  Report Type: Spontaneous
  Country: US (occurrence: US)
  Receive Date: 20191213
  Receipt Date: 20191213
  Transmission Date: 20200122
  Serious: Yes (Hospitalization)
  Sender: FDA-Public Use
  Company Number: None

PATIENT
  Age: 80 Year
  Sex: Female

DRUGS (10)
  1. CENTRUM [Concomitant]
     Active Substance: VITAMINS
  2. WARFARIN [Concomitant]
     Active Substance: WARFARIN
  3. OCUVITE [Concomitant]
     Active Substance: VITAMINS
  4. LISINOPRIL. [Concomitant]
     Active Substance: LISINOPRIL
  5. TYLENOL [Concomitant]
     Active Substance: ACETAMINOPHEN
  6. CALCIUM [Concomitant]
     Active Substance: CALCIUM
  7. SPIRONOLACT [Concomitant]
     Active Substance: SPIRONOLACTONE
  8. SILDENAFIL 20MG [Suspect]
     Active Substance: SILDENAFIL
     Indication: PULMONARY ARTERIAL HYPERTENSION
     Route: 048
     Dates: start: 20150828
  9. POTASSIUM [Concomitant]
     Active Substance: POTASSIUM
  10. FUROSEMIDE. [Concomitant]
     Active Substance: FUROSEMIDE

REACTIONS (1)
  - Diverticulitis [None]

NARRATIVE: CASE EVENT DATE: 20191213
